FAERS Safety Report 14958066 (Version 2)
Quarter: 2018Q2

REPORT INFORMATION
  Report Type: Report from Study
  Country: ES (occurrence: ES)
  Receive Date: 20180531
  Receipt Date: 20180606
  Transmission Date: 20180711
  Serious: Yes (Hospitalization)
  Sender: FDA-Public Use
  Company Number: ES-PFIZER INC-2018219601

PATIENT
  Age: 75 Year
  Sex: Male
  Weight: 74 kg

DRUGS (24)
  1. 5-FU /00098801/ [Suspect]
     Active Substance: FLUOROURACIL
     Dosage: 761 MG, CYCLIC
     Route: 040
     Dates: start: 20140422, end: 20140422
  2. AFLIBERCEPT [Suspect]
     Active Substance: AFLIBERCEPT
     Dosage: 230 MG, CYCLIC
     Route: 041
     Dates: start: 20140610, end: 20140610
  3. 5-FU /00098801/ [Suspect]
     Active Substance: FLUOROURACIL
     Dosage: 2739 MG, CYCLIC
     Route: 041
     Dates: start: 20140610
  4. AFLIBERCEPT [Suspect]
     Active Substance: AFLIBERCEPT
     Dosage: 328 MG, CYCLIC
     Route: 041
     Dates: start: 20140506, end: 20140506
  5. DIGOXINE [Concomitant]
     Active Substance: DIGOXIN
     Indication: THERAPEUTIC PROCEDURE
     Dosage: UNK
     Dates: start: 20140702
  6. 5-FU /00098801/ [Suspect]
     Active Substance: FLUOROURACIL
     Indication: COLORECTAL CANCER METASTATIC
     Dosage: 4565 MG, CYCLIC
     Route: 041
     Dates: start: 20140422
  7. AFLIBERCEPT [Suspect]
     Active Substance: AFLIBERCEPT
     Indication: COLORECTAL CANCER METASTATIC
     Dosage: 328 MG, CYCLIC
     Route: 041
     Dates: start: 20140422, end: 20140422
  8. AFLIBERCEPT [Suspect]
     Active Substance: AFLIBERCEPT
     Dosage: 230 MG, CYCLIC
     Route: 041
     Dates: start: 20140520, end: 20140520
  9. IRINOTECAN HCL [Suspect]
     Active Substance: IRINOTECAN HYDROCHLORIDE
     Indication: COLORECTAL CANCER METASTATIC
     Dosage: 342 MG, CYCLIC
     Route: 041
     Dates: start: 20140422, end: 20140422
  10. IRINOTECAN HCL [Suspect]
     Active Substance: IRINOTECAN HYDROCHLORIDE
     Dosage: 240 MG, CYCLIC
     Route: 041
     Dates: start: 20140520, end: 20140520
  11. LEUCOVORIN /00566701/ [Suspect]
     Active Substance: LEUCOVORIN
     Dosage: 609 MG, CYCLIC
     Route: 041
     Dates: start: 20140506, end: 20140506
  12. 5-FU /00098801/ [Suspect]
     Active Substance: FLUOROURACIL
     Dosage: 456 MG, CYCLIC
     Route: 040
     Dates: start: 20140610, end: 20140610
  13. 5-FU /00098801/ [Suspect]
     Active Substance: FLUOROURACIL
     Dosage: 456 MG, CYCLIC
     Route: 040
     Dates: start: 20140506, end: 20140506
  14. ZALTRAP [Suspect]
     Active Substance: ZIV-AFLIBERCEPT
     Indication: COLORECTAL CANCER METASTATIC
     Dosage: 328 MG, CYCLIC (FIRST 2 DOSES AT 328 MG AND SECOND LAST DOSES 240MG)
     Route: 041
     Dates: start: 20140506, end: 20140506
  15. LOPERAMIDE [Concomitant]
     Active Substance: LOPERAMIDE
     Indication: THERAPEUTIC PROCEDURE
     Dosage: UNK
     Dates: start: 20140422
  16. IRINOTECAN HCL [Suspect]
     Active Substance: IRINOTECAN HYDROCHLORIDE
     Dosage: 274 MG, CYCLIC
     Route: 041
     Dates: start: 20140506, end: 20140506
  17. IRINOTECAN HCL [Suspect]
     Active Substance: IRINOTECAN HYDROCHLORIDE
     Dosage: 205 MG, CYCLIC
     Route: 041
     Dates: start: 20140610, end: 20140610
  18. LEUCOVORIN /00566701/ [Suspect]
     Active Substance: LEUCOVORIN
     Dosage: 533 MG, CYCLIC
     Route: 041
     Dates: start: 20140520, end: 20140520
  19. 5-FU /00098801/ [Suspect]
     Active Substance: FLUOROURACIL
     Dosage: 2739 MG, CYCLIC
     Route: 041
     Dates: start: 20140506
  20. LEUCOVORIN /00566701/ [Suspect]
     Active Substance: LEUCOVORIN
     Dosage: 456 MG, CYCLIC
     Route: 041
     Dates: start: 20140610, end: 20140610
  21. 5-FU /00098801/ [Suspect]
     Active Substance: FLUOROURACIL
     Dosage: 533 MG, CYCLIC
     Route: 040
     Dates: start: 20140520, end: 20140520
  22. OMEPRAZOLE. [Concomitant]
     Active Substance: OMEPRAZOLE
     Indication: THERAPEUTIC PROCEDURE
     Dosage: UNK
     Dates: start: 20140702
  23. 5-FU /00098801/ [Suspect]
     Active Substance: FLUOROURACIL
     Dosage: 3195 MG, CYCLIC
     Route: 041
     Dates: start: 20140520
  24. LEUCOVORIN /00566701/ [Suspect]
     Active Substance: LEUCOVORIN
     Indication: COLORECTAL CANCER METASTATIC
     Dosage: 761 MG, CYCLIC
     Route: 041
     Dates: start: 20140422, end: 20140422

REACTIONS (6)
  - Renal failure [Not Recovered/Not Resolved]
  - Pain in extremity [Recovered/Resolved]
  - Pulmonary embolism [Recovered/Resolved]
  - Diarrhoea [Recovered/Resolved]
  - Decreased appetite [Recovered/Resolved]
  - Deep vein thrombosis [Recovered/Resolved]

NARRATIVE: CASE EVENT DATE: 20140610
